FAERS Safety Report 4494166-5 (Version None)
Quarter: 2004Q4

REPORT INFORMATION
  Report Type: 
  Country: None (occurrence: None)
  Receive Date: 20041102
  Receipt Date: 20041014
  Transmission Date: 20050328
  Serious: Yes (Other)
  Sender: FDA-Public Use
  Company Number: US_0410106958

PATIENT
  Age: 70 Year
  Sex: Male

DRUGS (2)
  1. CIALIS [Suspect]
     Indication: ERECTILE DYSFUNCTION
     Dosage: 20 MG/1 EVERY OTHER DAY
     Dates: start: 20040601, end: 20040901
  2. AMLODIPINE [Concomitant]

REACTIONS (1)
  - MONOPARESIS [None]
